FAERS Safety Report 21343220 (Version 1)
Quarter: 2022Q3

REPORT INFORMATION
  Report Type: Spontaneous
  Country: AU (occurrence: AU)
  Receive Date: 20220916
  Receipt Date: 20220916
  Transmission Date: 20221026
  Serious: No
  Sender: FDA-Public Use
  Company Number: AU-Covis Pharma GmbH-2022COV02759

PATIENT
  Sex: Female

DRUGS (2)
  1. OMNARIS [Suspect]
     Active Substance: CICLESONIDE
     Indication: Sinus disorder
     Dosage: PRN
     Route: 045
     Dates: start: 202208
  2. UNSPECIFIED INGREDIENT [Concomitant]
     Active Substance: UNSPECIFIED INGREDIENT
     Indication: Depression

REACTIONS (1)
  - Product dose omission issue [Unknown]

NARRATIVE: CASE EVENT DATE: 20220101
